FAERS Safety Report 9609695 (Version 1)
Quarter: 2013Q4

REPORT INFORMATION
  Report Type: Spontaneous
  Country: US (occurrence: US)
  Receive Date: 20131009
  Receipt Date: 20131009
  Transmission Date: 20140711
  Serious: Yes (Other)
  Sender: FDA-Public Use
  Company Number: PHEH2013US020866

PATIENT
  Sex: 0

DRUGS (1)
  1. TASIGNA [Suspect]

REACTIONS (1)
  - Electrocardiogram QT prolonged [Unknown]
